FAERS Safety Report 6666193-0 (Version None)
Quarter: 2010Q1

REPORT INFORMATION
  Report Type: 
  Country: None (occurrence: None)
  Receive Date: 20100331
  Receipt Date: 20100325
  Transmission Date: 20100710
  Serious: Yes (Life-Threatening, Hospitalization, Disabling, Other)
  Sender: FDA-Public Use
  Company Number: 2010SP012814

PATIENT
  Age: 28 Year
  Sex: Male

DRUGS (1)
  1. TEMODAR [Suspect]
     Indication: BRAIN NEOPLASM
     Dosage: 380 MG; QD; PO
     Route: 048
     Dates: end: 20100210

REACTIONS (7)
  - APLASTIC ANAEMIA [None]
  - DRUG TOXICITY [None]
  - NEUTROPENIC SEPSIS [None]
  - PANCYTOPENIA [None]
  - RASH [None]
  - SUPERINFECTION BACTERIAL [None]
  - SUPERINFECTION FUNGAL [None]
